FAERS Safety Report 11786482 (Version 1)
Quarter: 2015Q4

REPORT INFORMATION
  Report Type: Spontaneous
  Country: DE (occurrence: DE)
  Receive Date: 20151130
  Receipt Date: 20151130
  Transmission Date: 20160305
  Serious: Yes (Other)
  Sender: FDA-Public Use
  Company Number: DE-PFIZER INC-2015402572

PATIENT
  Age: 52 Year
  Sex: Female

DRUGS (5)
  1. SOLIAN [Suspect]
     Active Substance: AMISULPRIDE
     Dosage: 600 MG, 1X/DAY
     Route: 048
     Dates: start: 20140801, end: 20150105
  2. SOLIAN [Suspect]
     Active Substance: AMISULPRIDE
     Dosage: 150 MG, 1X/DAY
     Route: 048
     Dates: start: 20150121, end: 20150126
  3. VENLAFAXINE HCL [Suspect]
     Active Substance: VENLAFAXINE HYDROCHLORIDE
     Dosage: 150 MG, 1X/DAY
     Route: 048
     Dates: start: 2013
  4. SOLIAN [Suspect]
     Active Substance: AMISULPRIDE
     Dosage: 300 MG, 1X/DAY
     Route: 048
     Dates: start: 20150114, end: 20150120
  5. SOLIAN [Suspect]
     Active Substance: AMISULPRIDE
     Dosage: 400 MG, 1X/DAY
     Route: 048
     Dates: start: 20150106, end: 20150113

REACTIONS (3)
  - Dyskinesia [Recovered/Resolved]
  - Thinking abnormal [Unknown]
  - Fear [Unknown]

NARRATIVE: CASE EVENT DATE: 20141001
